FAERS Safety Report 9165684 (Version 2)
Quarter: 2013Q1

REPORT INFORMATION
  Report Type: Spontaneous
  Country: US (occurrence: None)
  Receive Date: 20130227
  Receipt Date: 20130311
  Transmission Date: 20140127
  Serious: Yes (Other)
  Sender: FDA-Public Use
  Company Number: 2013AP003314

PATIENT
  Age: 59 Year
  Sex: Female

DRUGS (4)
  1. QUETIAPINE [Suspect]
  2. LEVODOPA/ CARBIDOPA [Suspect]
     Indication: HALLUCINATION
  3. PRAMIPEXOLE [Suspect]
     Indication: HALLUCINATION
  4. PRAMIPEXOLE [Suspect]
     Indication: PARKINSON^S DISEASE

REACTIONS (8)
  - Acute hepatic failure [None]
  - Hallucination [None]
  - Drug-induced liver injury [None]
  - Encephalopathy [None]
  - Splenomegaly [None]
  - Hepatic necrosis [None]
  - Drug-induced liver injury [None]
  - DNA antibody positive [None]
